FAERS Safety Report 8342407-6 (Version None)
Quarter: 2012Q2

REPORT INFORMATION
  Report Type: 
  Country: None (occurrence: None)
  Receive Date: 20120508
  Receipt Date: 20120427
  Transmission Date: 20120825
  Serious: No
  Sender: FDA-Public Use
  Company Number: US-BIOGENIDEC-2012BI010297

PATIENT
  Sex: Male

DRUGS (1)
  1. TYSABRI [Suspect]
     Indication: MULTIPLE SCLEROSIS
     Route: 042
     Dates: start: 20120125

REACTIONS (10)
  - EXOSTOSIS [None]
  - MUSCLE RUPTURE [None]
  - JOINT DISLOCATION [None]
  - PRURITUS [None]
  - MUSCULOSKELETAL PAIN [None]
  - ROTATOR CUFF SYNDROME [None]
  - ARTHRITIS [None]
  - SYNCOPE [None]
  - JOINT INJURY [None]
  - PAIN IN EXTREMITY [None]
